FAERS Safety Report 10580220 (Version 1)
Quarter: 2014Q4

REPORT INFORMATION
  Report Type: Spontaneous
  Country: US (occurrence: US)
  Receive Date: 20141112
  Receipt Date: 20141112
  Transmission Date: 20150529
  Serious: No
  Sender: FDA-Public Use
  Company Number: US-009507513-1410USA008278

PATIENT
  Sex: Female

DRUGS (1)
  1. DR. SCHOLLS FOR HER CRACKED SKIN REPAIR [Suspect]
     Active Substance: DIMETHICONE
     Indication: DRY SKIN
     Dosage: UNK, UNKNOWN
     Route: 061
     Dates: start: 2014

REACTIONS (1)
  - Drug ineffective [Unknown]

NARRATIVE: CASE EVENT DATE: 2014
